FAERS Safety Report 5363171-9 (Version None)
Quarter: 2007Q2

REPORT INFORMATION
  Report Type: 
  Country: None (occurrence: None)
  Receive Date: 20070620
  Receipt Date: 20070612
  Transmission Date: 20071010
  Serious: Yes (Other)
  Sender: FDA-Public Use
  Company Number: PHBS2007JP09691

PATIENT
  Age: 3 Year
  Sex: Male

DRUGS (3)
  1. ZADITEN [Suspect]
     Indication: RHINITIS ALLERGIC
     Dosage: 6 ML, UNK
     Route: 048
     Dates: start: 20070601
  2. ZADITEN [Suspect]
     Dosage: 4.8 MG, UNK
     Route: 048
     Dates: start: 20070604
  3. MUCODYNE [Concomitant]
     Dosage: 8 ML, UNK
     Route: 048
     Dates: start: 20070601

REACTIONS (2)
  - ACCIDENTAL OVERDOSE [None]
  - SOMNOLENCE [None]
